FAERS Safety Report 6818158-3 (Version None)
Quarter: 2010Q3

REPORT INFORMATION
  Report Type: 
  Country: None (occurrence: None)
  Receive Date: 20100706
  Receipt Date: 20100701
  Transmission Date: 20110219
  Serious: Yes (Death, Hospitalization)
  Sender: FDA-Public Use
  Company Number: NZ-ABBOTT-04P-118-0275060-00

PATIENT
  Sex: Male

DRUGS (1)
  1. REDUCTIL 10MG [Suspect]
     Indication: PRODUCT USED FOR UNKNOWN INDICATION
     Route: 048
     Dates: start: 20030121, end: 20030626

REACTIONS (1)
  - MENINGOCOCCAL SEPSIS [None]
